FAERS Safety Report 9712915 (Version 1)
Quarter: 2013Q4

REPORT INFORMATION
  Report Type: Spontaneous
  Country: US (occurrence: None)
  Receive Date: 20131125
  Receipt Date: 20131125
  Transmission Date: 20140711
  Serious: Yes (Disabling)
  Sender: FDA-Public Use
  Company Number: None

PATIENT
  Sex: Male

DRUGS (1)
  1. PREDNISONE [Suspect]
     Indication: RESPIRATORY DISORDER
     Dosage: 10 MG 3 IN AM; 10 MG 1-2 X A DAY
     Dates: start: 2011, end: 2012

REACTIONS (2)
  - Eye disorder [None]
  - Arthropathy [None]
